FAERS Safety Report 5213240-9 (Version None)
Quarter: 2007Q1

REPORT INFORMATION
  Report Type: 
  Country: None (occurrence: None)
  Receive Date: 20070116
  Receipt Date: 20061219
  Transmission Date: 20070707
  Serious: Yes (Other)
  Sender: FDA-Public Use
  Company Number: 2006SP008752

PATIENT
  Age: 22 Year
  Sex: Female
  Weight: 69.7632 kg

DRUGS (3)
  1. TEMODAR [Suspect]
     Indication: ANAPLASTIC ASTROCYTOMA
     Dosage: 100 MG QD PO ; 20 MG QD PO
     Route: 048
     Dates: start: 20061106, end: 20061110
  2. TEMODAR [Suspect]
     Indication: ANAPLASTIC ASTROCYTOMA
     Dosage: 100 MG QD PO ; 20 MG QD PO
     Route: 048
     Dates: start: 20061106, end: 20061110
  3. TEMODAR [Suspect]

REACTIONS (2)
  - FEBRILE NEUTROPENIA [None]
  - THROMBOCYTOPENIA [None]
